FAERS Safety Report 9225181 (Version 1)
Quarter: 2013Q2

REPORT INFORMATION
  Report Type: Spontaneous
  Country: PL (occurrence: PL)
  Receive Date: 20130411
  Receipt Date: 20130411
  Transmission Date: 20140414
  Serious: Yes (Other)
  Sender: FDA-Public Use
  Company Number: PL-BAYER-2013-046015

PATIENT
  Age: 30 Year
  Sex: Female

DRUGS (1)
  1. BETAFERON [Suspect]
     Dosage: 250 ?G, UNK
     Dates: start: 20121111, end: 20130410

REACTIONS (3)
  - Skin necrosis [None]
  - Rash maculo-papular [None]
  - White blood cell count decreased [None]
